FAERS Safety Report 8006128-1 (Version None)
Quarter: 2011Q4

REPORT INFORMATION
  Report Type: 
  Country: None (occurrence: None)
  Receive Date: 20111226
  Receipt Date: 20111122
  Transmission Date: 20120403
  Serious: Yes (Other)
  Sender: FDA-Public Use
  Company Number: JP-AMGEN-JPNSP2011059808

PATIENT
  Age: 73 Year
  Sex: Male

DRUGS (6)
  1. MADOPAR [Concomitant]
     Route: 048
  2. MICARDIS [Concomitant]
     Dosage: 40 MG, QD
     Route: 048
  3. ROMIPLATE [Suspect]
     Dosage: 70 MUG, QWK
     Route: 058
     Dates: start: 20110805
  4. ROMIPLATE [Suspect]
     Indication: IDIOPATHIC THROMBOCYTOPENIC PURPURA
     Dosage: UNK UNK, ONE TIME DOSE
  5. PREDNISOLONE [Concomitant]
     Dosage: 12.5 MG, QD
     Route: 048
     Dates: start: 20111021, end: 20111104
  6. ROMIPLATE [Suspect]
     Dosage: 70 MUG, Q2WK
     Route: 058
     Dates: start: 20110826, end: 20111021

REACTIONS (4)
  - BLOOD LACTATE DEHYDROGENASE INCREASED [None]
  - FIBRIN D DIMER INCREASED [None]
  - DEEP VEIN THROMBOSIS [None]
  - PULMONARY ARTERY THROMBOSIS [None]
